FAERS Safety Report 6274266-X (Version None)
Quarter: 2009Q3

REPORT INFORMATION
  Report Type: 
  Country: None (occurrence: None)
  Receive Date: 20090720
  Receipt Date: 20090626
  Transmission Date: 20100115
  Serious: Yes (Other)
  Sender: FDA-Public Use
  Company Number: BR-PFIZER INC-2009232799

PATIENT

DRUGS (1)
  1. CHAMPIX [Suspect]

REACTIONS (7)
  - ABNORMAL DREAMS [None]
  - ASTHMA [None]
  - DEPRESSION [None]
  - NAUSEA [None]
  - RESPIRATORY FAILURE [None]
  - SUICIDAL IDEATION [None]
  - VOMITING [None]
